FAERS Safety Report 8672919 (Version 6)
Quarter: 2013Q4

REPORT INFORMATION
  Report Type: Report from Study
  Country: JP (occurrence: JP)
  Receive Date: 20120719
  Receipt Date: 20131118
  Transmission Date: 20140711
  Serious: Yes (Other)
  Sender: FDA-Public Use
  Company Number: JP-JNJFOC-20120707188

PATIENT
  Age: 76 Year
  Sex: Male
  Weight: 53 kg

DRUGS (16)
  1. USTEKINUMAB [Suspect]
     Indication: PSORIASIS
     Route: 058
     Dates: start: 20120507, end: 20120507
  2. USTEKINUMAB [Suspect]
     Indication: PSORIASIS
     Route: 058
     Dates: start: 20111121, end: 20111121
  3. USTEKINUMAB [Suspect]
     Indication: PSORIASIS
     Route: 058
     Dates: start: 20110829, end: 20110829
  4. USTEKINUMAB [Suspect]
     Indication: PSORIASIS
     Route: 058
     Dates: start: 20120806, end: 20120806
  5. USTEKINUMAB [Suspect]
     Indication: PSORIASIS
     Route: 058
     Dates: start: 20121105, end: 20121105
  6. USTEKINUMAB [Suspect]
     Indication: PSORIASIS
     Route: 058
     Dates: start: 20130128, end: 20130128
  7. USTEKINUMAB [Suspect]
     Indication: PSORIASIS
     Route: 058
     Dates: start: 20130502, end: 20130502
  8. USTEKINUMAB [Suspect]
     Indication: PSORIASIS
     Route: 058
     Dates: start: 20130722
  9. USTEKINUMAB [Suspect]
     Indication: PSORIASIS
     Route: 058
     Dates: start: 20110801, end: 20110801
  10. USTEKINUMAB [Suspect]
     Indication: PSORIASIS
     Route: 058
     Dates: start: 20120213, end: 20120213
  11. MYSER [Concomitant]
     Indication: PSORIASIS
     Dosage: AS NEEDED
     Route: 062
  12. HEPARINOID [Concomitant]
     Indication: PSORIASIS
     Dosage: AS NEEDED
     Route: 061
     Dates: start: 20120607
  13. BESOFTEN [Concomitant]
     Dosage: AS NEEDED
     Route: 062
  14. GLYMESASON [Concomitant]
     Dosage: AS NEEDED
     Route: 062
  15. VIDARABINE [Concomitant]
     Dosage: AS NEEDED
  16. ANTEBATE [Concomitant]
     Dosage: AS NEEDED

REACTIONS (1)
  - Prostate cancer [Recovered/Resolved]
